FAERS Safety Report 9297983 (Version 18)
Quarter: 2014Q2

REPORT INFORMATION
  Report Type: Spontaneous
  Country: US (occurrence: US)
  Receive Date: 20130520
  Receipt Date: 20140625
  Transmission Date: 20141212
  Serious: Yes (Hospitalization, Other)
  Sender: FDA-Public Use
  Company Number: US-JNJFOC-20130507344

PATIENT
  Age: 34 Year
  Sex: Female
  Weight: 63.5 kg

DRUGS (27)
  1. TYLENOL PM [Suspect]
     Indication: INSOMNIA
     Route: 048
     Dates: start: 200406, end: 20090726
  2. TYLENOL PM [Suspect]
     Indication: PAIN
     Route: 048
     Dates: start: 200406, end: 20090726
  3. EXTRA STRENGTH TYLENOL [Suspect]
     Route: 048
  4. EXTRA STRENGTH TYLENOL [Suspect]
     Indication: PAIN
     Route: 048
     Dates: start: 2005, end: 20090726
  5. OXYCODONE [Concomitant]
     Indication: NERVE INJURY
     Route: 065
     Dates: start: 2009
  6. OXYCODONE [Concomitant]
     Indication: NERVE INJURY
     Route: 065
     Dates: start: 200601, end: 201202
  7. OXYCODONE [Concomitant]
     Indication: PAIN
     Route: 065
     Dates: start: 2009
  8. OXYCODONE [Concomitant]
     Indication: PAIN
     Route: 065
     Dates: start: 200601, end: 201202
  9. METHADONE [Concomitant]
     Indication: NERVE INJURY
     Route: 065
     Dates: start: 2007, end: 2012
  10. METHADONE [Concomitant]
     Indication: NERVE INJURY
     Dosage: 30 MG FOUR TIMES A DAY AND 60 MG AT NIGHT
     Route: 065
     Dates: start: 2009
  11. METHADONE [Concomitant]
     Indication: NERVE INJURY
     Dosage: 30 MG FOUR TIMES A DAY AND 60 MG AT NIGHT
     Route: 065
     Dates: start: 2010
  12. METHADONE [Concomitant]
     Indication: PAIN
     Dosage: 30 MG FOUR TIMES A DAY AND 60 MG AT NIGHT
     Route: 065
     Dates: start: 2009
  13. METHADONE [Concomitant]
     Indication: PAIN
     Route: 065
     Dates: start: 2007, end: 2012
  14. METHADONE [Concomitant]
     Indication: PAIN
     Dosage: 30 MG FOUR TIMES A DAY AND 60 MG AT NIGHT
     Route: 065
     Dates: start: 2010
  15. XANAX [Concomitant]
     Indication: SLEEP DISORDER
     Dosage: 0,5 (UNIT UNSPECIFIED)
     Route: 065
     Dates: start: 2009
  16. XANAX [Concomitant]
     Indication: SLEEP DISORDER
     Route: 065
     Dates: start: 2006, end: 200907
  17. NEURONTIN [Concomitant]
     Indication: NERVE INJURY
     Route: 065
     Dates: start: 200903
  18. NEURONTIN [Concomitant]
     Indication: NERVE INJURY
     Route: 065
     Dates: start: 200603, end: 200903
  19. AMITRIPTYLINE [Concomitant]
     Indication: DEPRESSION
     Route: 065
     Dates: start: 200802
  20. ROXICET [Concomitant]
     Indication: PRODUCT USED FOR UNKNOWN INDICATION
     Route: 065
     Dates: start: 20051227
  21. FERRETAB [Concomitant]
     Indication: PRODUCT USED FOR UNKNOWN INDICATION
     Route: 065
     Dates: start: 20051227
  22. HYDROCODONE [Concomitant]
     Indication: PRODUCT USED FOR UNKNOWN INDICATION
     Route: 065
     Dates: start: 20070409
  23. IRON SUPPLEMENT [Concomitant]
     Indication: PRODUCT USED FOR UNKNOWN INDICATION
     Dosage: 1 TAB, 2 TO 3 TIMES PER DAY
     Route: 048
  24. CYMBALTA [Concomitant]
     Indication: PRODUCT USED FOR UNKNOWN INDICATION
     Dosage: 1 TABLET
     Route: 048
  25. TRAZODONE [Concomitant]
     Indication: PRODUCT USED FOR UNKNOWN INDICATION
     Dosage: 3 TAB
     Route: 048
  26. COLACE [Concomitant]
     Indication: PRODUCT USED FOR UNKNOWN INDICATION
     Dosage: 1 TAB
     Route: 048
  27. SUBOXONE [Concomitant]
     Indication: PRODUCT USED FOR UNKNOWN INDICATION
     Dosage: 1 TAB
     Route: 048

REACTIONS (11)
  - Withdrawal syndrome [Unknown]
  - Microcytic anaemia [Unknown]
  - Withdrawal syndrome [Recovered/Resolved]
  - Subgaleal haematoma [Unknown]
  - Respiratory failure [Recovered/Resolved]
  - Acute hepatic failure [Unknown]
  - Convulsion [Unknown]
  - Hepatotoxicity [Unknown]
  - Overdose [Recovering/Resolving]
  - Hepatitis acute [Recovering/Resolving]
  - Abdominal pain [Unknown]
